FAERS Safety Report 4893613-4 (Version None)
Quarter: 2005Q4

REPORT INFORMATION
  Report Type: 
  Country: None (occurrence: None)
  Receive Date: 20051223
  Receipt Date: 20051002
  Transmission Date: 20060501
  Serious: No
  Sender: FDA-Public Use
  Company Number: 2005PV002962

PATIENT
  Age: 55 Year
  Sex: Female
  Weight: 56.246 kg

DRUGS (4)
  1. SYMLIN [Suspect]
     Indication: DIABETES MELLITUS INSULIN-DEPENDENT
     Dosage: 15 MCG;QAC;SC ; 60 MCG;TID;SC
     Route: 058
     Dates: start: 20051001, end: 20051001
  2. SYMLIN [Suspect]
     Indication: DIABETES MELLITUS INSULIN-DEPENDENT
     Dosage: 15 MCG;QAC;SC ; 60 MCG;TID;SC
     Route: 058
     Dates: start: 20051001
  3. INSULIN [Concomitant]
  4. SYNTHROID [Concomitant]

REACTIONS (4)
  - ANXIETY [None]
  - FATIGUE [None]
  - MENTAL IMPAIRMENT [None]
  - NERVOUSNESS [None]
